FAERS Safety Report 6291748-5 (Version None)
Quarter: 2009Q3

REPORT INFORMATION
  Report Type: 
  Country: None (occurrence: None)
  Receive Date: 20090730
  Receipt Date: 20090723
  Transmission Date: 20100115
  Serious: Yes (Hospitalization)
  Sender: FDA-Public Use
  Company Number: US-AMGEN-KDL357504

PATIENT
  Age: 66 Year
  Sex: Female

DRUGS (4)
  1. PROCRIT [Suspect]
     Indication: ANAEMIA
     Route: 058
     Dates: end: 20090701
  2. FERROUS SULFATE TAB [Concomitant]
  3. INTERFERON [Concomitant]
  4. RIBAVIRIN [Concomitant]

REACTIONS (2)
  - REFRACTORY ANAEMIA [None]
  - RETICULOCYTE COUNT INCREASED [None]
